FAERS Safety Report 5279082-3 (Version None)
Quarter: 2007Q1

REPORT INFORMATION
  Report Type: 
  Country: None (occurrence: None)
  Receive Date: 20070328
  Receipt Date: 20070316
  Transmission Date: 20070707
  Serious: Yes (Hospitalization)
  Sender: FDA-Public Use
  Company Number: PHBS2007JP03274

PATIENT
  Age: 73 Year
  Sex: Female

DRUGS (3)
  1. NEORAL [Suspect]
     Indication: PEMPHIGOID
     Dosage: 150 MG/D
     Route: 048
     Dates: start: 20070101
  2. NEORAL [Suspect]
     Dosage: 75 MG/D
     Route: 048
  3. NEORAL [Suspect]
     Dosage: 50 MG/D
     Route: 048
     Dates: end: 20070206

REACTIONS (5)
  - CYTOMEGALOVIRUS INFECTION [None]
  - DISSEMINATED INTRAVASCULAR COAGULATION [None]
  - LYMPHOPENIA [None]
  - PLATELET COUNT DECREASED [None]
  - STAPHYLOCOCCAL INFECTION [None]
